FAERS Safety Report 19401294 (Version 2)
Quarter: 2021Q2

REPORT INFORMATION
  Report Type: Spontaneous
  Country: US (occurrence: US)
  Receive Date: 20210611
  Receipt Date: 20210621
  Transmission Date: 20210717
  Serious: No
  Sender: FDA-Public Use
  Company Number: US-JNJFOC-20210612243

PATIENT

DRUGS (9)
  1. TYLENOL [Suspect]
     Active Substance: ACETAMINOPHEN
     Indication: PAIN
  2. TYLENOL [Suspect]
     Active Substance: ACETAMINOPHEN
     Indication: FEELING HOT
  3. TYLENOL [Suspect]
     Active Substance: ACETAMINOPHEN
     Indication: PAIN IN EXTREMITY
  4. TYLENOL [Suspect]
     Active Substance: ACETAMINOPHEN
     Indication: NAUSEA
  5. TYLENOL [Suspect]
     Active Substance: ACETAMINOPHEN
     Indication: PYREXIA
  6. COVID?19 VACCINE [Concomitant]
     Indication: COVID-19
     Route: 065
  7. TYLENOL [Suspect]
     Active Substance: ACETAMINOPHEN
     Indication: PERIPHERAL SWELLING
     Route: 065
  8. TYLENOL [Suspect]
     Active Substance: ACETAMINOPHEN
     Indication: CHILLS
  9. TYLENOL [Suspect]
     Active Substance: ACETAMINOPHEN
     Indication: CHEST DISCOMFORT

REACTIONS (2)
  - Drug ineffective [Unknown]
  - Product use in unapproved indication [Unknown]
